FAERS Safety Report 8287647-X (Version None)
Quarter: 2012Q2

REPORT INFORMATION
  Report Type: 
  Country: None (occurrence: None)
  Receive Date: 20120416
  Receipt Date: 20120411
  Transmission Date: 20120825
  Serious: Yes (Death, Hospitalization)
  Sender: FDA-Public Use
  Company Number: PHHY2012EC024083

PATIENT
  Age: 90 Year
  Sex: Female

DRUGS (2)
  1. GLYBURIDE [Concomitant]
     Dosage: 1 DF, QD
  2. STALEVO 100 [Suspect]
     Indication: PARKINSON'S DISEASE
     Dosage: 50/12.5/200MG, 1 TABLET DAILY
     Route: 048
     Dates: start: 20101124

REACTIONS (3)
  - PARKINSON'S DISEASE [None]
  - CONVULSION [None]
  - DIABETIC COMPLICATION [None]
